FAERS Safety Report 21737286 (Version 2)
Quarter: 2022Q4

REPORT INFORMATION
  Report Type: Spontaneous
  Country: US (occurrence: US)
  Receive Date: 20221216
  Receipt Date: 20221227
  Transmission Date: 20230113
  Serious: Yes (Death, Other)
  Sender: FDA-Public Use
  Company Number: US-009507513-2212USA005209

PATIENT
  Sex: Male

DRUGS (1)
  1. KEYTRUDA [Suspect]
     Active Substance: PEMBROLIZUMAB
     Indication: Bladder cancer
     Route: 042
     Dates: end: 20211021

REACTIONS (5)
  - Cardiac disorder [Fatal]
  - Cardiac arrest [Unknown]
  - Immunodeficiency [Unknown]
  - Syncope [Unknown]
  - Pleural effusion [Unknown]
